FAERS Safety Report 8585987-8 (Version None)
Quarter: 2012Q3

REPORT INFORMATION
  Report Type: 
  Country: None (occurrence: None)
  Receive Date: 20120810
  Receipt Date: 20120806
  Transmission Date: 20120928
  Serious: Yes (Hospitalization)
  Sender: FDA-Public Use
  Company Number: US-ACTELION-A-NJ2012-69333

PATIENT
  Age: 3 Year
  Sex: Female

DRUGS (3)
  1. TRACLEER [Suspect]
     Indication: PULMONARY ARTERIAL HYPERTENSION
     Dosage: 31.25 MG, BID
     Route: 048
  2. SILDENAFIL [Concomitant]
  3. REMODULIN [Concomitant]

REACTIONS (2)
  - PULMONARY OEDEMA [None]
  - OXYGEN SATURATION DECREASED [None]
